FAERS Safety Report 8921420 (Version 1)
Quarter: 2012Q4

REPORT INFORMATION
  Report Type: 
  Country: GB (occurrence: GB)
  Receive Date: 20121122
  Receipt Date: 20121122
  Transmission Date: 20130627
  Serious: Yes (Death, Other)
  Sender: FDA-Public Use
  Company Number: GB-ACCORD-015267

PATIENT
  Age: 73 Year
  Sex: Male
  Weight: 67.3 kg

DRUGS (6)
  1. GEMCITABINE [Suspect]
     Indication: ADJUVANT THERAPY
     Dosage: Cyclical, 1862 mg on day 1, 8, 15.5 cycles
     Route: 042
     Dates: start: 20120507, end: 20120907
  2. WARFARIN [Concomitant]
  3. LOPERAMIDE [Concomitant]
  4. GRANISETRON [Concomitant]
  5. CREON [Concomitant]
  6. BISOPROLOL [Concomitant]

REACTIONS (3)
  - Pneumonitis [Fatal]
  - Thrombosis [Fatal]
  - Ischaemia [Unknown]
